FAERS Safety Report 11146806 (Version 2)
Quarter: 2015Q2

REPORT INFORMATION
  Report Type: Report from Study
  Country: MX (occurrence: MX)
  Receive Date: 20150528
  Receipt Date: 20150605
  Transmission Date: 20150821
  Serious: Yes (Death, Hospitalization, Other)
  Sender: FDA-Public Use
  Company Number: PHHY2015MX064552

PATIENT
  Age: 30 Year
  Sex: Male
  Weight: 65 kg

DRUGS (2)
  1. GLIVEC [Suspect]
     Active Substance: IMATINIB MESYLATE
     Indication: PHILADELPHIA CHROMOSOME POSITIVE
  2. GLIVEC [Suspect]
     Active Substance: IMATINIB MESYLATE
     Indication: ACUTE LYMPHOCYTIC LEUKAEMIA
     Dosage: 600 MG, UNK
     Route: 065

REACTIONS (11)
  - Abdominal pain [Unknown]
  - Rectal haemorrhage [Unknown]
  - Acute lymphocytic leukaemia [Unknown]
  - Abdominal pain upper [Unknown]
  - Leukaemia recurrent [Unknown]
  - Death [Fatal]
  - Pyrexia [Unknown]
  - Hydrocholecystis [Unknown]
  - Blastocystis infection [Recovering/Resolving]
  - Bone pain [Unknown]
  - Nausea [Unknown]

NARRATIVE: CASE EVENT DATE: 20150326
